FAERS Safety Report 7322678-5 (Version None)
Quarter: 2011Q1

REPORT INFORMATION
  Report Type: 
  Country: None (occurrence: None)
  Receive Date: 20110301
  Receipt Date: 20091224
  Transmission Date: 20110831
  Serious: No
  Sender: FDA-Public Use
  Company Number: US-PFIZER INC-2009293785

PATIENT
  Sex: Female
  Weight: 74.8 kg

DRUGS (8)
  1. DARIFENACIN [Concomitant]
     Dosage: 15 MG, UNK
  2. TRIOBE [Concomitant]
     Dosage: UNK
  3. GLIPIZIDE [Suspect]
     Indication: TYPE 2 DIABETES MELLITUS
     Dosage: 20 MG, 1X/DAY
     Route: 048
     Dates: start: 19911101
  4. SIMVASTATIN [Concomitant]
     Dosage: 40 MG, UNK
  5. SYNTHROID [Concomitant]
     Dosage: 75 UG, UNK
  6. AVANDIA [Concomitant]
     Dosage: 4 MG, UNK
  7. LEXAPRO [Concomitant]
     Dosage: 20 MG, UNK
  8. CARVEDILOL [Concomitant]
     Dosage: 10 MG, UNK

REACTIONS (2)
  - DERMATITIS [None]
  - FOOD ALLERGY [None]
